FAERS Safety Report 12876985 (Version 1)
Quarter: 2016Q4

REPORT INFORMATION
  Report Type: Spontaneous
  Country: US (occurrence: US)
  Receive Date: 20161021
  Receipt Date: 20161021
  Transmission Date: 20170207
  Serious: No
  Sender: FDA-Public Use
  Company Number: None

PATIENT
  Age: 32 Year
  Sex: Male

DRUGS (1)
  1. VORICONAZOLE 510MG SANDOZ [Suspect]
     Active Substance: VORICONAZOLE
     Indication: POST PROCEDURAL INFECTION
     Route: 042
     Dates: start: 20160617

REACTIONS (11)
  - Hypoaesthesia [None]
  - Tremor [None]
  - Paraesthesia [None]
  - Hallucination [None]
  - Device use error [None]
  - Paranoia [None]
  - Therapy cessation [None]
  - Refusal of treatment by patient [None]
  - Device occlusion [None]
  - Lethargy [None]
  - Catheter site haemorrhage [None]

NARRATIVE: CASE EVENT DATE: 20160624
